FAERS Safety Report 8210304-2 (Version None)
Quarter: 2012Q1

REPORT INFORMATION
  Report Type: 
  Country: None (occurrence: None)
  Receive Date: 20120314
  Receipt Date: 20110520
  Transmission Date: 20120608
  Serious: No
  Sender: FDA-Public Use
  Company Number: US-ASTRAZENECA-2011SE31539

PATIENT
  Age: 58 Year
  Sex: Female

DRUGS (1)
  1. METOPROLOL SUCCINATE [Suspect]
     Route: 048
     Dates: start: 20070101

REACTIONS (5)
  - DRUG INEFFECTIVE [None]
  - TACHYCARDIA [None]
  - THERAPY REGIMEN CHANGED [None]
  - OFF LABEL USE [None]
  - PALPITATIONS [None]
